FAERS Safety Report 5271258-4 (Version None)
Quarter: 2007Q1

REPORT INFORMATION
  Report Type: 
  Country: None (occurrence: None)
  Receive Date: 20061214
  Receipt Date: 20060721
  Transmission Date: 20070707
  Serious: Yes (Hospitalization, Disabling, Other)
  Sender: FDA-Public Use
  Company Number: 2006070140

PATIENT
  Age: 61 Year
  Sex: Male

DRUGS (2)
  1. BEXTRA [Suspect]
     Indication: MUSCULOSKELETAL PAIN
     Dosage: 20 MG (20 MG,1 IN 1 D)
     Dates: start: 20030730
  2. BEXTRA [Suspect]
     Indication: PAIN IN EXTREMITY
     Dosage: 20 MG (20 MG,1 IN 1 D)
     Dates: start: 20030730

REACTIONS (1)
  - MYOCARDIAL INFARCTION [None]
